FAERS Safety Report 20859041 (Version 3)
Quarter: 2022Q3

REPORT INFORMATION
  Report Type: Report from Study
  Country: US (occurrence: US)
  Receive Date: 20220523
  Receipt Date: 20220919
  Transmission Date: 20221027
  Serious: No
  Sender: FDA-Public Use
  Company Number: US-KYOWAKIRIN-2022BKK007158

PATIENT

DRUGS (1)
  1. POTELIGEO [Suspect]
     Active Substance: MOGAMULIZUMAB-KPKC
     Indication: Product used for unknown indication
     Dosage: 20 MG/5 ML
     Route: 042

REACTIONS (8)
  - Disease progression [Not Recovered/Not Resolved]
  - Asthenia [Unknown]
  - Skin exfoliation [Unknown]
  - Blister [Unknown]
  - Pruritus [Not Recovered/Not Resolved]
  - Musculoskeletal pain [Unknown]
  - Fatigue [Unknown]
  - Therapy interrupted [Unknown]
